FAERS Safety Report 4351959-2 (Version None)
Quarter: 2004Q2

REPORT INFORMATION
  Report Type: 
  Country: None (occurrence: None)
  Receive Date: 20040429
  Receipt Date: 20040203
  Transmission Date: 20050107
  Serious: No
  Sender: FDA-Public Use
  Company Number: 2004-112991-NL

PATIENT
  Age: 23 Year
  Sex: Female
  Weight: 68.2 kg

DRUGS (8)
  1. NUVARING [Suspect]
     Indication: CONTRACEPTION
     Dosage: 1 DF 4WEEKLY VAGINAL
     Route: 067
     Dates: start: 20030101
  2. ADDERALL 10 [Concomitant]
  3. LEXAPRO [Concomitant]
  4. MULTI-VITAMIN [Concomitant]
  5. VIT B6 [Concomitant]
  6. VIT B12 [Concomitant]
  7. VIT C [Concomitant]
  8. ANTIOXIDANTS [Concomitant]

REACTIONS (4)
  - FATIGUE [None]
  - MEDICAL DEVICE COMPLICATION [None]
  - METRORRHAGIA [None]
  - STOMACH DISCOMFORT [None]
